FAERS Safety Report 10253922 (Version 1)
Quarter: 2014Q2

REPORT INFORMATION
  Report Type: Report from Study
  Country: JP (occurrence: JP)
  Receive Date: 20140623
  Receipt Date: 20140623
  Transmission Date: 20141212
  Serious: No
  Sender: FDA-Public Use
  Company Number: PHHY2013JP157151

PATIENT
  Age: 68 Year
  Sex: Male

DRUGS (6)
  1. TASIGNA [Suspect]
     Indication: CHRONIC MYELOID LEUKAEMIA
     Dosage: 600 MG, PER DAY
     Dates: start: 201203
  2. ADALAT CRONO [Concomitant]
     Dosage: UNK UKN, UNK
  3. DEPAKENE-R [Concomitant]
     Dosage: UNK UKN, UNK
  4. THYRADIN S [Concomitant]
     Dosage: UNK UKN, UNK
  5. MAGLAX [Concomitant]
     Dosage: UNK UKN, UNK
  6. ARICEPT [Concomitant]
     Dosage: UNK UKN, UNK

REACTIONS (3)
  - Constipation [Unknown]
  - Muscle spasms [Unknown]
  - Myalgia [Unknown]
